FAERS Safety Report 4471449-6 (Version None)
Quarter: 2004Q4

REPORT INFORMATION
  Report Type: 
  Country: None (occurrence: None)
  Receive Date: 20041007
  Receipt Date: 20041004
  Transmission Date: 20050328
  Serious: Yes (Other)
  Sender: FDA-Public Use
  Company Number: 002855

PATIENT
  Age: 60 Year
  Sex: Female

DRUGS (5)
  1. MEDROXYPROGESTERONE ACETATE [Suspect]
     Dates: start: 19920101, end: 20000501
  2. PROVERA [Suspect]
     Dates: start: 19920101, end: 20000501
  3. PREMARIN [Suspect]
     Dates: start: 19920101, end: 20000501
  4. ESTRATEST [Suspect]
     Dates: start: 20000501, end: 20010101
  5. MEDROXYPROGESTERONE ACETATE [Suspect]
     Dates: start: 19920101, end: 20000501

REACTIONS (1)
  - BREAST CANCER FEMALE [None]
